FAERS Safety Report 8447902 (Version 6)
Quarter: 2013Q1

REPORT INFORMATION
  Report Type: Spontaneous
  Country: US (occurrence: US)
  Receive Date: 20120308
  Receipt Date: 20130114
  Transmission Date: 20140127
  Serious: Yes (Hospitalization, Other)
  Sender: FDA-Public Use
  Company Number: US-009507513-1203USA00790

PATIENT
  Sex: 0

DRUGS (12)
  1. FOSAMAX [Suspect]
     Indication: BONE DENSITY DECREASED
     Dosage: 70 MG, QW
     Route: 048
     Dates: start: 2004, end: 200804
  2. FOSAMAX [Suspect]
     Dosage: UNK
     Route: 048
     Dates: start: 200505, end: 200804
  3. OMEGA-3 [Concomitant]
     Dosage: 100 MG, UNK
     Dates: start: 1990
  4. MAGNESIUM (UNSPECIFIED) [Concomitant]
     Dosage: 100 MG, UNK
     Dates: start: 1990
  5. ASCORBIC ACID [Concomitant]
     Dosage: 100 MG, UNK
     Dates: start: 1990
  6. VITAMIN B (UNSPECIFIED) [Concomitant]
     Dosage: 100 MG, UNK
     Dates: start: 1990
  7. VITAMIN D (UNSPECIFIED) [Concomitant]
     Dosage: 100 MG, UNK
     Dates: start: 1990
  8. CALCIUM CITRATE [Concomitant]
     Dosage: 100 MG, UNK
     Dates: start: 1990
  9. XANTHOPHYLL [Concomitant]
     Dosage: 100 MG, UNK
     Dates: start: 1990
  10. ACTONEL [Suspect]
     Indication: BONE DENSITY DECREASED
     Dosage: 75 MG, UNK
     Route: 048
     Dates: start: 2009
  11. COUMADIN [Concomitant]
  12. TOPROL XL TABLETS [Concomitant]

REACTIONS (25)
  - Femur fracture [Unknown]
  - Atrial fibrillation [Recovered/Resolved]
  - Open reduction of fracture [Unknown]
  - Tooth disorder [Unknown]
  - Hypertension [Not Recovered/Not Resolved]
  - Cataract operation [Unknown]
  - Osteopenia [Unknown]
  - Osteoporosis [Unknown]
  - Fall [Unknown]
  - Pulmonary congestion [Unknown]
  - Hyperlipidaemia [Unknown]
  - Chest discomfort [Unknown]
  - Bursitis [Unknown]
  - Osteoarthritis [Unknown]
  - Lumbar spinal stenosis [Unknown]
  - Chondrocalcinosis [Unknown]
  - Neck pain [Unknown]
  - Pneumonia [Unknown]
  - Pulmonary mass [Unknown]
  - Goitre [Unknown]
  - Dyspnoea [Unknown]
  - Hypertension [Unknown]
  - Balance disorder [Unknown]
  - Pulmonary hypertension [Unknown]
  - Aortic valve sclerosis [Unknown]
